FAERS Safety Report 24570749 (Version 1)
Quarter: 2024Q4

REPORT INFORMATION
  Report Type: Spontaneous
  Country: NL (occurrence: NL)
  Receive Date: 20241101
  Receipt Date: 20241101
  Transmission Date: 20250114
  Serious: Yes (Other)
  Sender: ALEXION PHARMACEUTICALS
  Company Number: None

PATIENT
  Age: 71 Year
  Weight: 97 kg

DRUGS (4)
  1. ROSUVASTATIN [Suspect]
     Active Substance: ROSUVASTATIN
     Indication: Blood cholesterol abnormal
     Dosage: 10 MILLIGRAM, 1/DAY
  2. ROSUVASTATIN [Suspect]
     Active Substance: ROSUVASTATIN
     Dosage: 10 MILLIGRAM, 1/DAY
  3. ROSUVASTATIN [Suspect]
     Active Substance: ROSUVASTATIN
     Dosage: 10 MILLIGRAM, 1/DAY
  4. ROSUVASTATIN [Suspect]
     Active Substance: ROSUVASTATIN
     Dosage: 10 MILLIGRAM, 1/DAY

REACTIONS (3)
  - Pruritus [Recovered/Resolved]
  - Dermatitis bullous [Recovered/Resolved]
  - Stoma site discharge [Recovered/Resolved]
